FAERS Safety Report 7345410-8 (Version None)
Quarter: 2011Q1

REPORT INFORMATION
  Report Type: 
  Country: None (occurrence: None)
  Receive Date: 20110310
  Receipt Date: 20110301
  Transmission Date: 20110831
  Serious: Yes (Death)
  Sender: FDA-Public Use
  Company Number: US-SANOFI-AVENTIS-2011SA010278

PATIENT
  Age: 91 Year
  Sex: Female

DRUGS (1)
  1. PLAVIX [Suspect]
     Route: 065
     Dates: start: 20101225, end: 20110101

REACTIONS (2)
  - INTESTINAL OBSTRUCTION [None]
  - AORTIC ANEURYSM [None]
